FAERS Safety Report 23098874 (Version 1)
Quarter: 2023Q4

REPORT INFORMATION
  Report Type: Other
  Country: CA (occurrence: CA)
  Receive Date: 20231024
  Receipt Date: 20231024
  Transmission Date: 20240110
  Serious: Yes (Other)
  Sender: FDA-Public Use
  Company Number: CA-LUPIN PHARMACEUTICALS INC.-2023-09143

PATIENT
  Age: 23 Year
  Sex: Female

DRUGS (2)
  1. CEPHALEXIN [Suspect]
     Active Substance: CEPHALEXIN
     Indication: Eyelid infection
     Dosage: UNK
     Route: 065
  2. RENFLEXIS [Suspect]
     Active Substance: INFLIXIMAB-ABDA
     Indication: Crohn^s disease
     Dosage: 400 MG, 1 EVERY 8 WEEKS, SINGLE USE VIAL
     Route: 042

REACTIONS (3)
  - Meibomianitis [Recovering/Resolving]
  - Diarrhoea [Recovering/Resolving]
  - Eyelid infection [Recovering/Resolving]
